FAERS Safety Report 4371774-3 (Version None)
Quarter: 2004Q2

REPORT INFORMATION
  Report Type: 
  Country: None (occurrence: None)
  Receive Date: 20040601
  Receipt Date: 20040518
  Transmission Date: 20050107
  Serious: Yes (Other)
  Sender: FDA-Public Use
  Company Number: US013176

PATIENT
  Age: 23 Month
  Sex: Female

DRUGS (1)
  1. ACTIQ [Suspect]
     Dosage: 1600 UG ONCE BUCCAL
     Route: 002
     Dates: start: 20040518, end: 20040518

REACTIONS (3)
  - ACCIDENTAL EXPOSURE [None]
  - FATIGUE [None]
  - SOMNOLENCE [None]
